FAERS Safety Report 9587189 (Version 1)
Quarter: 2013Q4

REPORT INFORMATION
  Report Type: Report from Study
  Country: US (occurrence: US)
  Receive Date: 20131003
  Receipt Date: 20131003
  Transmission Date: 20140711
  Serious: Yes (Other)
  Sender: FDA-Public Use
  Company Number: US-ACTELION-A-NJ2013-88982

PATIENT
  Age: 81 Year
  Sex: Female

DRUGS (3)
  1. TRACLEER [Suspect]
     Indication: PULMONARY ARTERIAL HYPERTENSION
     Dosage: UNK
     Route: 048
     Dates: start: 201309, end: 20130916
  2. TRACLEER [Suspect]
     Dosage: UNK
     Route: 048
     Dates: start: 201309
  3. ADCIRCA [Concomitant]

REACTIONS (1)
  - Ammonia increased [Recovered/Resolved]
